FAERS Safety Report 22020027 (Version 1)
Quarter: 2023Q1

REPORT INFORMATION
  Report Type: Spontaneous
  Country: US (occurrence: None)
  Receive Date: 20230217
  Receipt Date: 20230217
  Transmission Date: 20230418
  Serious: No
  Sender: FDA-Public Use
  Company Number: None

PATIENT
  Sex: Female
  Weight: 81 kg

DRUGS (6)
  1. ARTIFICIAL TEARS LUBRICANT EYE DROPS (CARBOXYMETHYLCELLULOSE SODIUM) [Suspect]
     Active Substance: CARBOXYMETHYLCELLULOSE SODIUM
     Indication: Dry eye
     Dosage: OTHER QUANTITY : 2 DROP(S);?FREQUENCY : TWICE A DAY;?
     Route: 047
     Dates: start: 20220902, end: 20230215
  2. SYNTHROID [Concomitant]
     Active Substance: LEVOTHYROXINE SODIUM
  3. PHENTERMINE [Concomitant]
     Active Substance: PHENTERMINE
  4. Multivitamins [Concomitant]
  5. VITAMIN D3 [Concomitant]
     Active Substance: CHOLECALCIFEROL
  6. Organic Greens with Superfood Blend [Concomitant]

REACTIONS (4)
  - Recalled product administered [None]
  - Vision blurred [None]
  - Periorbital swelling [None]
  - Suspected product contamination [None]
